FAERS Safety Report 4304493-X (Version None)
Quarter: 2004Q1

REPORT INFORMATION
  Report Type: 
  Country: None (occurrence: None)
  Receive Date: 20040224
  Receipt Date: 20040212
  Transmission Date: 20041129
  Serious: Yes (Death, Other)
  Sender: FDA-Public Use
  Company Number: ES-JNJFOC-20040202599

PATIENT
  Age: 46 Year
  Sex: Female

DRUGS (1)
  1. INFLIXIMAB (INFLIXIMAB, RECOMBINANT) LYOPHILIZED POWDER [Suspect]
     Indication: CROHN'S DISEASE
     Dosage: 225 MG, INTRAVENOUS
     Route: 042

REACTIONS (16)
  - ACANTHOSIS [None]
  - CEREBRAL INFARCTION [None]
  - CEREBRAL ISCHAEMIA [None]
  - EPIDERMAL NECROSIS [None]
  - HYPERKERATOSIS [None]
  - LEUKOCYTOSIS [None]
  - LICHEN PLANUS [None]
  - PAPILLOMA [None]
  - PARAKERATOSIS [None]
  - PRURIGO [None]
  - RASH PAPULAR [None]
  - RASH SCALY [None]
  - RED BLOOD CELL SEDIMENTATION RATE INCREASED [None]
  - SKIN OEDEMA [None]
  - THROMBOCYTHAEMIA [None]
  - THROMBOSIS [None]
